FAERS Safety Report 5267267-1 (Version None)
Quarter: 2007Q1

REPORT INFORMATION
  Report Type: 
  Country: None (occurrence: None)
  Receive Date: 20070316
  Receipt Date: 20070313
  Transmission Date: 20070707
  Serious: Yes (Hospitalization)
  Sender: FDA-Public Use
  Company Number: US-GLAXOSMITHKLINE-A0643039A

PATIENT
  Age: 62 Year
  Sex: Female

DRUGS (7)
  1. ADVAIR DISKUS 100/50 [Suspect]
     Indication: ASTHMA
     Route: 055
     Dates: start: 20040101
  2. NASONEX [Concomitant]
  3. HYDROCHLOROTHIAZIDE [Concomitant]
  4. TRIAMTEREN [Concomitant]
  5. CALTRATE [Concomitant]
  6. NEXIUM [Concomitant]
  7. ALBUTEROL [Concomitant]

REACTIONS (8)
  - ARTHRALGIA [None]
  - CHEST PAIN [None]
  - MUSCLE SPASMS [None]
  - NERVOUSNESS [None]
  - PNEUMONIA [None]
  - URTICARIA [None]
  - VISUAL ACUITY REDUCED [None]
  - WHEEZING [None]
